FAERS Safety Report 25701045 (Version 1)
Quarter: 2025Q3

REPORT INFORMATION
  Report Type: Spontaneous
  Country: US (occurrence: None)
  Receive Date: 20250818
  Receipt Date: 20250818
  Transmission Date: 20251021
  Serious: Yes (Death)
  Sender: FDA-CTU
  Company Number: None

PATIENT
  Age: 70 Year
  Sex: Female

DRUGS (11)
  1. CAPECITABINE [Suspect]
     Active Substance: CAPECITABINE
     Indication: Breast cancer metastatic
     Dosage: FREQUENCY : TWICE A DAY;?
     Route: 048
     Dates: start: 20250505, end: 20250715
  2. DOXYCYCLINE HYCLATE [Concomitant]
     Active Substance: DOXYCYCLINE HYCLATE
  3. JANUVIA 50MG TABLETS [Concomitant]
  4. FAMOTIDINE 40MG TABLETS [Concomitant]
  5. METFORMIN HYDROCHLORIDE [Concomitant]
     Active Substance: METFORMIN HYDROCHLORIDE
  6. TAMOXIFEN 20MG TABLETS [Concomitant]
  7. OLANZAPINE [Concomitant]
     Active Substance: OLANZAPINE
  8. MORPHINE SULF 15MG ER TABS (12H) [Concomitant]
  9. UREA 10% CREAM 85GM [Concomitant]
  10. DICLOFENAC 1% GEL 100GM (OTC) [Concomitant]
  11. DIPHENOXYLATE/ATRP[OME 2.5 MG TABS [Concomitant]

REACTIONS (1)
  - Death [None]

NARRATIVE: CASE EVENT DATE: 20250701
